FAERS Safety Report 20742988 (Version 11)
Quarter: 2024Q1

REPORT INFORMATION
  Report Type: Spontaneous
  Country: CA (occurrence: CA)
  Receive Date: 20220425
  Receipt Date: 20240226
  Transmission Date: 20240410
  Serious: Yes (Other)
  Sender: FDA-Public Use
  Company Number: CA-CELLTRION INC.-2022CA004983

PATIENT

DRUGS (19)
  1. INFLECTRA [Suspect]
     Active Substance: INFLIXIMAB-DYYB
     Indication: Crohn^s disease
     Dosage: 10 MG/KG, EVERY 4 WEEKS
     Route: 042
     Dates: start: 20220120
  2. INFLECTRA [Suspect]
     Active Substance: INFLIXIMAB-DYYB
     Dosage: 10 MG/KG, EVERY 4 WEEKS
     Route: 042
     Dates: start: 20220317
  3. INFLECTRA [Suspect]
     Active Substance: INFLIXIMAB-DYYB
     Dosage: 10 MG/KG, EVERY 4 WEEKS
     Route: 042
     Dates: start: 20220512
  4. INFLECTRA [Suspect]
     Active Substance: INFLIXIMAB-DYYB
     Dosage: 1160MG (SUPPOSED TO RECEIVE 10MG/KG, EVERY 4 WEEK)
     Route: 042
     Dates: start: 20220707
  5. INFLECTRA [Suspect]
     Active Substance: INFLIXIMAB-DYYB
     Dosage: 1165 MG FREQUENCY: UNKNOWN
     Route: 042
     Dates: start: 20220929
  6. INFLECTRA [Suspect]
     Active Substance: INFLIXIMAB-DYYB
     Dosage: 10 MG/KG, EVERY 4 WEEKS
     Route: 042
     Dates: start: 20221027
  7. INFLECTRA [Suspect]
     Active Substance: INFLIXIMAB-DYYB
     Dosage: 1165MG FREQUENCY: UNKNOWN
     Route: 042
     Dates: start: 20221027
  8. INFLECTRA [Suspect]
     Active Substance: INFLIXIMAB-DYYB
     Dosage: 10 MG/KG (1165 MG), EVERY 4 WEEKS
     Route: 042
     Dates: start: 20221124
  9. INFLECTRA [Suspect]
     Active Substance: INFLIXIMAB-DYYB
     Dosage: 10 MG/KG (1165 MG), EVERY 4 WEEKS
     Route: 042
     Dates: start: 20221124
  10. INFLECTRA [Suspect]
     Active Substance: INFLIXIMAB-DYYB
     Dosage: 10MG /KG (1175MG), EVERY 4 WEEKS
     Route: 042
     Dates: start: 20221222
  11. INFLECTRA [Suspect]
     Active Substance: INFLIXIMAB-DYYB
     Dosage: 10MG /KG (1175MG), EVERY 4 WEEKS
     Route: 042
     Dates: start: 20230119
  12. INFLECTRA [Suspect]
     Active Substance: INFLIXIMAB-DYYB
     Dosage: 10MG /KG (1175MG), EVERY 4 WEEKS
     Route: 042
     Dates: start: 20230119
  13. INFLECTRA [Suspect]
     Active Substance: INFLIXIMAB-DYYB
     Dosage: 1185 MG FREQUENCY: UNKNOWN
     Route: 042
     Dates: start: 20230216
  14. INFLECTRA [Suspect]
     Active Substance: INFLIXIMAB-DYYB
     Dosage: 1195 MG FREQUENCY: UNKNOWN
     Route: 042
     Dates: start: 20230316
  15. INFLECTRA [Suspect]
     Active Substance: INFLIXIMAB-DYYB
     Dosage: 1200 MG
     Route: 042
  16. INFLECTRA [Suspect]
     Active Substance: INFLIXIMAB-DYYB
     Dosage: 1195 MG, FREQUNECY: UNKNOWN
     Route: 042
     Dates: start: 20230413
  17. INFLECTRA [Suspect]
     Active Substance: INFLIXIMAB-DYYB
     Dosage: 10 MG/KG, EVERY 5 WEEKS
     Route: 042
     Dates: start: 20230831
  18. INFLECTRA [Suspect]
     Active Substance: INFLIXIMAB-DYYB
     Dosage: 10 MG/KG, EVERY 5 WEEKS
     Dates: start: 20240111
  19. OZEMPIC [Concomitant]
     Active Substance: SEMAGLUTIDE
     Dosage: UNK

REACTIONS (9)
  - Haematochezia [Unknown]
  - Proctalgia [Not Recovered/Not Resolved]
  - COVID-19 [Unknown]
  - COVID-19 [Recovering/Resolving]
  - Off label use [Unknown]
  - Intentional product use issue [Unknown]
  - Off label use [Unknown]
  - Nausea [Unknown]
  - Anxiety [Unknown]

NARRATIVE: CASE EVENT DATE: 20220120
